FAERS Safety Report 4341068-0 (Version None)
Quarter: 2004Q2

REPORT INFORMATION
  Report Type: 
  Country: None (occurrence: None)
  Receive Date: 20040413
  Receipt Date: 20040405
  Transmission Date: 20050107
  Serious: Yes (Death)
  Sender: FDA-Public Use
  Company Number: US-JNJFOC-20040401109

PATIENT
  Age: 66 Year
  Sex: Male

DRUGS (3)
  1. DURAGESIC [Suspect]
     Indication: CANCER PAIN
     Dosage: , 1 IN 72 HOUR, TRANSDERMAL
     Route: 062
     Dates: start: 20040201, end: 20040324
  2. OXYCONTIN [Concomitant]
  3. PLETAL [Concomitant]

REACTIONS (2)
  - LUNG NEOPLASM MALIGNANT [None]
  - MALIGNANT NEOPLASM PROGRESSION [None]
